FAERS Safety Report 7532111-6 (Version None)
Quarter: 2011Q2

REPORT INFORMATION
  Report Type: 
  Country: None (occurrence: None)
  Receive Date: 20110608
  Receipt Date: 20110601
  Transmission Date: 20111010
  Serious: Yes (Death, Other)
  Sender: FDA-Public Use
  Company Number: AU-PFIZER INC-2011109729

PATIENT
  Age: 68 Year
  Sex: Male

DRUGS (4)
  1. ZYVOX [Suspect]
     Indication: STAPHYLOCOCCAL BACTERAEMIA
     Dosage: 600 MG, 2X/DAY
     Route: 042
     Dates: start: 20110404, end: 20110413
  2. ZYVOX [Suspect]
     Indication: STAPHYLOCOCCAL INFECTION
  3. BACTRIM [Concomitant]
     Indication: PNEUMOCYSTIS JIROVECI PNEUMONIA
     Dosage: UNK
     Dates: start: 20110401
  4. GANCICLOVIR [Suspect]
     Indication: CYTOMEGALOVIRUS INFECTION
     Dosage: UNK
     Dates: start: 20110328, end: 20110418

REACTIONS (2)
  - DEATH [None]
  - THROMBOCYTOPENIA [None]
